FAERS Safety Report 7340920-1 (Version None)
Quarter: 2011Q1

REPORT INFORMATION
  Report Type: 
  Country: None (occurrence: None)
  Receive Date: 20110309
  Receipt Date: 20100608
  Transmission Date: 20110831
  Serious: No
  Sender: FDA-Public Use
  Company Number: US-ABBOTT-10P-163-0650506-00

PATIENT
  Sex: Female
  Weight: 79.45 kg

DRUGS (4)
  1. MULTIVITAMIN [Concomitant]
     Indication: ROUTINE HEALTH MAINTENANCE
  2. LUPRON DEPOT [Suspect]
     Indication: ANAEMIA
  3. LUPRON DEPOT [Suspect]
     Indication: UTERINE LEIOMYOMA
     Dates: start: 20100520
  4. MULTIGEN PLUS [Concomitant]
     Indication: ANAEMIA

REACTIONS (1)
  - MENORRHAGIA [None]
